FAERS Safety Report 15844415 (Version 2)
Quarter: 2019Q1

REPORT INFORMATION
  Report Type: Spontaneous
  Country: US (occurrence: US)
  Receive Date: 20190118
  Receipt Date: 20190223
  Transmission Date: 20190417
  Serious: No
  Sender: FDA-Public Use
  Company Number: PHEH2019US002518

PATIENT
  Sex: Female

DRUGS (1)
  1. AFINITOR [Suspect]
     Active Substance: EVEROLIMUS
     Indication: ENDOMETRIAL NEOPLASM
     Dosage: 5 MG, QD
     Route: 048
     Dates: start: 20181116

REACTIONS (2)
  - Nausea [Unknown]
  - Malaise [Unknown]
